FAERS Safety Report 10258824 (Version 1)
Quarter: 2014Q2

REPORT INFORMATION
  Report Type: Spontaneous
  Country: US (occurrence: None)
  Receive Date: 20140623
  Receipt Date: 20140623
  Transmission Date: 20141212
  Serious: No
  Sender: FDA-Public Use
  Company Number: 2014-00075

PATIENT
  Age: 22 Year
  Sex: Female
  Weight: 68.04 kg

DRUGS (2)
  1. ZICAM EXTREME CONGESTION RELIEF [Suspect]
     Indication: NASOPHARYNGITIS
     Dosage: 3 SPRAYS EACH NOSTRIL ONCE
     Dates: start: 20140612
  2. ZICAM EXTREME CONGESTION RELIEF [Suspect]
     Indication: INFLUENZA
     Dosage: 3 SPRAYS EACH NOSTRIL ONCE
     Dates: start: 20140612

REACTIONS (2)
  - Anosmia [None]
  - Sinus congestion [None]
